FAERS Safety Report 23143754 (Version 1)
Quarter: 2023Q4

REPORT INFORMATION
  Report Type: Spontaneous
  Country: US (occurrence: US)
  Receive Date: 20231103
  Receipt Date: 20231103
  Transmission Date: 20240110
  Serious: No
  Sender: FDA-Public Use
  Company Number: US-MYOVANT SCIENCES GMBH-2023MYSCI0700302

PATIENT
  Sex: Male

DRUGS (1)
  1. ORGOVYX [Suspect]
     Active Substance: RELUGOLIX
     Indication: Prostate cancer
     Dosage: UNK
     Route: 065
     Dates: start: 2023

REACTIONS (6)
  - Rash pruritic [Unknown]
  - Insomnia [Unknown]
  - Hot flush [Unknown]
  - Night sweats [Unknown]
  - Arthralgia [Unknown]
  - Nocturia [Unknown]

NARRATIVE: CASE EVENT DATE: 20230101
